FAERS Safety Report 7803928-5 (Version None)
Quarter: 2011Q4

REPORT INFORMATION
  Report Type: 
  Country: None (occurrence: None)
  Receive Date: 20111010
  Receipt Date: 20110928
  Transmission Date: 20120403
  Serious: Yes (Hospitalization)
  Sender: FDA-Public Use
  Company Number: FR-PFIZER INC-2011237175

PATIENT
  Age: 64 Year
  Sex: Female

DRUGS (17)
  1. CIPROFLOXACIN [Concomitant]
     Indication: INFLAMMATION
  2. ENALAPRIL MALEATE [Concomitant]
     Dosage: 20 MG, 2X/DAY
  3. CIPROFLOXACIN [Concomitant]
     Indication: PYREXIA
     Dosage: UNK
     Dates: start: 20110813, end: 20110815
  4. PREDNISONE [Concomitant]
     Dosage: 10 MG, 1X/DAY
  5. RAPAMUNE [Concomitant]
     Dosage: UNK
     Dates: start: 20070101, end: 20110811
  6. DIAMICRON [Concomitant]
     Dosage: 30 MG, 1X/DAY
  7. HYPERIUM [Concomitant]
     Dosage: 1 MG, 2X/DAY
  8. PIPERACILLIN AND TAZOBACTAM [Suspect]
     Indication: INFLAMMATION
     Dosage: UNK
     Route: 042
     Dates: start: 20110908, end: 20110909
  9. MYCOPHENOLATE MOFETIL (CELLCEPT) [Concomitant]
     Dosage: 500 MG, 2X/DAY
  10. LEVOTHYROXINE SODIUM [Concomitant]
     Dosage: 150 UG, 1X/DAY
  11. ATORVASTATIN CALCIUM [Concomitant]
     Dosage: 40 MG, 1X/DAY
  12. PRAZOSIN HCL [Concomitant]
     Dosage: 2.5 MG, 1X/DAY
  13. NEORAL [Concomitant]
     Dosage: UNK
     Dates: start: 20110812
  14. FERROUS SULFATE TAB [Concomitant]
     Dosage: UNK
  15. PIPERACILLIN AND TAZOBACTAM [Suspect]
     Indication: PYREXIA
     Dosage: UNK
     Route: 042
     Dates: start: 20110813, end: 20110815
  16. AMLODIPINE/VALSARTAN [Concomitant]
     Dosage: 10 MG/160 MG ONCE DAILY
  17. VITAMIN D [Concomitant]
     Dosage: 0.25 UG, 1X/DAY

REACTIONS (3)
  - CYTOLYTIC HEPATITIS [None]
  - EOSINOPHILIA [None]
  - PYREXIA [None]
